FAERS Safety Report 19968400 (Version 1)
Quarter: 2021Q4

REPORT INFORMATION
  Report Type: Spontaneous
  Country: IN (occurrence: IN)
  Receive Date: 20211019
  Receipt Date: 20211019
  Transmission Date: 20220303
  Serious: Yes (Other)
  Sender: FDA-Public Use
  Company Number: IN-MYLANLABS-2021M1073746

PATIENT
  Age: 15 Year
  Sex: Female
  Weight: 50 kg

DRUGS (1)
  1. BUPIVACAINE [Suspect]
     Active Substance: BUPIVACAINE
     Indication: Analgesic therapy
     Dosage: 2 MILLILITER, GIVEN AT SUPRATROCHLEAR...
     Route: 065

REACTIONS (2)
  - Eyelid ptosis [Recovered/Resolved]
  - Haematoma [Recovered/Resolved]
